FAERS Safety Report 8168728-8 (Version None)
Quarter: 2012Q1

REPORT INFORMATION
  Report Type: 
  Country: None (occurrence: None)
  Receive Date: 20120103
  Receipt Date: 20111114
  Transmission Date: 20120608
  Serious: No
  Sender: FDA-Public Use
  Company Number: AE-2011-003454

PATIENT
  Age: 57 Year
  Sex: Male
  Weight: 74.8435 kg

DRUGS (4)
  1. RIBAVIRIN [Concomitant]
  2. INCIVEK [Suspect]
     Dosage: 2250 MG (750 MG,3 IN 1 D),ORAL
     Route: 048
     Dates: start: 20111007
  3. PEGASYS [Concomitant]
  4. BENADRYL [Concomitant]

REACTIONS (5)
  - IRRITABILITY [None]
  - CONFUSIONAL STATE [None]
  - FRUSTRATION [None]
  - INFLUENZA LIKE ILLNESS [None]
  - RASH PRURITIC [None]
